FAERS Safety Report 9843111 (Version 2)
Quarter: 2014Q3

REPORT INFORMATION
  Report Type: Spontaneous
  Country: JP (occurrence: US)
  Receive Date: 20140124
  Receipt Date: 20140723
  Transmission Date: 20150326
  Serious: No
  Sender: FDA-Public Use
  Company Number: US-009507513-1401USA010783

PATIENT
  Sex: Female
  Weight: 63.49 kg

DRUGS (1)
  1. NUVARING [Suspect]
     Active Substance: ETHINYL ESTRADIOL\ETONOGESTREL
     Indication: CONTRACEPTION
     Dosage: 11.7 MG/2.7 MG
     Route: 067

REACTIONS (7)
  - Dental operation [Unknown]
  - Increased tendency to bruise [Unknown]
  - Skin abrasion [Recovering/Resolving]
  - Plantar fasciitis [Unknown]
  - Astigmatism [Unknown]
  - Fluid retention [Recovered/Resolved]
  - Deep vein thrombosis [Unknown]

NARRATIVE: CASE EVENT DATE: 20120607
